FAERS Safety Report 14977876 (Version 1)
Quarter: 2018Q2

REPORT INFORMATION
  Report Type: Report from Study
  Country: None (occurrence: AR)
  Receive Date: 20180606
  Receipt Date: 20180606
  Transmission Date: 20180711
  Serious: Yes (Death, Other)
  Sender: FDA-Public Use
  Company Number: AR-ABBVIE-18S-007-2378607-00

PATIENT
  Age: 80 Year
  Sex: Male

DRUGS (2)
  1. DIPYRONE [Suspect]
     Active Substance: DIPYRONE
     Indication: PYREXIA
     Route: 065
     Dates: start: 20180526
  2. ZEMPLAR [Suspect]
     Active Substance: PARICALCITOL
     Indication: HYPERPARATHYROIDISM SECONDARY
     Route: 042
     Dates: start: 20151221

REACTIONS (3)
  - Pyrexia [Unknown]
  - Cardio-respiratory arrest [Fatal]
  - Urinary tract infection [Not Recovered/Not Resolved]

NARRATIVE: CASE EVENT DATE: 201805
